FAERS Safety Report 15760642 (Version 2)
Quarter: 2019Q1

REPORT INFORMATION
  Report Type: Spontaneous
  Country: US (occurrence: US)
  Receive Date: 20181226
  Receipt Date: 20190122
  Transmission Date: 20190417
  Serious: No
  Sender: FDA-Public Use
  Company Number: US-PFIZER INC-2018525544

PATIENT
  Age: 64 Year
  Sex: Female

DRUGS (2)
  1. XELJANZ XR [Suspect]
     Active Substance: TOFACITINIB CITRATE
     Indication: RHEUMATOID ARTHRITIS
     Dosage: 11 MG, DAILY
     Route: 048
     Dates: start: 20181101
  2. RASUVO [Concomitant]
     Active Substance: METHOTREXATE SODIUM
     Dosage: UNK

REACTIONS (7)
  - Lip swelling [Unknown]
  - Dyspnoea [Unknown]
  - Dysgeusia [Unknown]
  - Lip exfoliation [Unknown]
  - Hyperhidrosis [Unknown]
  - Paraesthesia oral [Unknown]
  - Hypertension [Unknown]

NARRATIVE: CASE EVENT DATE: 20181101
